FAERS Safety Report 5018675-5 (Version None)
Quarter: 2006Q2

REPORT INFORMATION
  Report Type: 
  Country: None (occurrence: None)
  Receive Date: 20060530
  Receipt Date: 20060516
  Transmission Date: 20061013
  Serious: Yes (Hospitalization)
  Sender: FDA-Public Use
  Company Number: 2006PV009310

PATIENT
  Age: 59 Year
  Sex: Female

DRUGS (11)
  1. BYETTA [Suspect]
     Indication: AUTOIMMUNE DISORDER
     Dosage: SEE IMAGE
     Route: 058
     Dates: start: 20051101, end: 20060116
  2. BYETTA [Suspect]
     Indication: GLUCOSE TOLERANCE IMPAIRED
     Dosage: SEE IMAGE
     Route: 058
     Dates: start: 20051101, end: 20060116
  3. BYETTA [Suspect]
     Indication: AUTOIMMUNE DISORDER
     Dosage: SEE IMAGE
     Route: 058
     Dates: start: 20060117
  4. BYETTA [Suspect]
     Indication: GLUCOSE TOLERANCE IMPAIRED
     Dosage: SEE IMAGE
     Route: 058
     Dates: start: 20060117
  5. GLUCOPHAGE [Concomitant]
  6. LANTUS [Concomitant]
  7. ACTOS [Concomitant]
  8. HYZAAR [Concomitant]
  9. SPIRONOLACTONE [Concomitant]
  10. VYTORIN [Concomitant]
  11. VITAMIN B-12 [Concomitant]

REACTIONS (3)
  - GASTROENTERITIS [None]
  - LARGE INTESTINAL HAEMORRHAGE [None]
  - RECTAL HAEMORRHAGE [None]
